FAERS Safety Report 23271789 (Version 1)
Quarter: 2023Q4

REPORT INFORMATION
  Report Type: Spontaneous
  Country: CN (occurrence: CN)
  Receive Date: 20231207
  Receipt Date: 20231207
  Transmission Date: 20240110
  Serious: Yes (Hospitalization)
  Sender: FDA-Public Use
  Company Number: CN-PFIZER INC-PV202300197027

PATIENT
  Age: 59 Year
  Sex: Female
  Weight: 49 kg

DRUGS (8)
  1. EPIRUBICIN [Suspect]
     Active Substance: EPIRUBICIN
     Indication: Breast cancer female
     Dosage: 115 MG, ONCE EVERY 21 DAYS
     Route: 042
     Dates: start: 20230913, end: 20230913
  2. EPIRUBICIN [Suspect]
     Active Substance: EPIRUBICIN
     Dosage: 115 MG, ONCE EVERY 21 DAYS
     Route: 042
     Dates: start: 20231004, end: 20231004
  3. CYCLOPHOSPHAMIDE [Suspect]
     Active Substance: CYCLOPHOSPHAMIDE
     Indication: Breast cancer female
     Dosage: 0.8 G, ONCE EVERY 21 DAYS
     Route: 042
     Dates: start: 20230913, end: 20230913
  4. CYCLOPHOSPHAMIDE [Suspect]
     Active Substance: CYCLOPHOSPHAMIDE
     Dosage: 0.8 G, ONCE EVERY 21 DAYS
     Route: 042
     Dates: start: 20231004, end: 20231004
  5. SODIUM CHLORIDE [Concomitant]
     Active Substance: SODIUM CHLORIDE
     Indication: Vehicle solution use
     Dosage: 50 ML, EVERY 3 WEEKS
     Route: 042
     Dates: start: 20230913, end: 20230913
  6. SODIUM CHLORIDE [Concomitant]
     Active Substance: SODIUM CHLORIDE
     Dosage: 50 ML, EVERY 3 WEEKS
     Route: 042
     Dates: start: 20230913, end: 20230913
  7. SODIUM CHLORIDE [Concomitant]
     Active Substance: SODIUM CHLORIDE
     Dosage: 50 ML, EVERY 3 WEEKS
     Route: 042
     Dates: start: 20231004, end: 20231004
  8. SODIUM CHLORIDE [Concomitant]
     Active Substance: SODIUM CHLORIDE
     Dosage: 50 ML, EVERY 3 WEEKS
     Route: 042
     Dates: start: 20231004, end: 20231004

REACTIONS (1)
  - Supraventricular extrasystoles [Recovering/Resolving]

NARRATIVE: CASE EVENT DATE: 20231025
